FAERS Safety Report 18957596 (Version 1)
Quarter: 2021Q1

REPORT INFORMATION
  Report Type: Spontaneous
  Country: US (occurrence: US)
  Receive Date: 20210301
  Receipt Date: 20210301
  Transmission Date: 20210420
  Serious: Yes (Other)
  Sender: FDA-Public Use
  Company Number: None

PATIENT
  Age: 38 Year
  Sex: Female

DRUGS (1)
  1. BUPRENORPHINE/NALOXONE FILMS [Suspect]
     Active Substance: BUPRENORPHINE HYDROCHLORIDE\NALOXONE HYDROCHLORIDE
     Indication: DRUG DEPENDENCE
     Dosage: ?          OTHER DOSE:8MG?2MG;?
     Route: 048
     Dates: start: 20190101, end: 20190101

REACTIONS (5)
  - Treatment failure [None]
  - Pharyngeal swelling [None]
  - Nausea [None]
  - Vomiting [None]
  - Oral mucosal blistering [None]

NARRATIVE: CASE EVENT DATE: 20190101
